FAERS Safety Report 22234726 (Version 2)
Quarter: 2023Q2

REPORT INFORMATION
  Report Type: Report from Study
  Country: FR (occurrence: FR)
  Receive Date: 20230420
  Receipt Date: 20230505
  Transmission Date: 20230722
  Serious: Yes (Death, Hospitalization)
  Sender: FDA-Public Use
  Company Number: US-ROCHE-3224879

PATIENT
  Age: 71 Year
  Sex: Male
  Weight: 73 kg

DRUGS (76)
  1. BEVACIZUMAB [Suspect]
     Active Substance: BEVACIZUMAB
     Indication: Colorectal cancer
     Dosage: 390 MG
     Route: 041
     Dates: start: 20220207, end: 20220207
  2. BEVACIZUMAB [Suspect]
     Active Substance: BEVACIZUMAB
     Dosage: 390 MG
     Route: 041
     Dates: start: 20220222, end: 20220222
  3. BEVACIZUMAB [Suspect]
     Active Substance: BEVACIZUMAB
     Dosage: 390 MG
     Route: 041
     Dates: start: 20220307, end: 20220307
  4. BEVACIZUMAB [Suspect]
     Active Substance: BEVACIZUMAB
     Dosage: 390 MG
     Route: 041
     Dates: start: 20220321, end: 20220321
  5. BEVACIZUMAB [Suspect]
     Active Substance: BEVACIZUMAB
     Dosage: 390 MG
     Route: 041
     Dates: start: 20220404, end: 20220404
  6. BEVACIZUMAB [Suspect]
     Active Substance: BEVACIZUMAB
     Dosage: 390 MG
     Route: 041
     Dates: start: 20220419, end: 20220419
  7. BEVACIZUMAB [Suspect]
     Active Substance: BEVACIZUMAB
     Dosage: 390 MG
     Route: 041
     Dates: start: 20220502, end: 20220502
  8. BEVACIZUMAB [Suspect]
     Active Substance: BEVACIZUMAB
     Dosage: 390 MG
     Route: 041
     Dates: start: 20220516, end: 20220516
  9. BEVACIZUMAB [Suspect]
     Active Substance: BEVACIZUMAB
     Dosage: 390 MG
     Route: 041
     Dates: start: 20220601, end: 20220601
  10. BEVACIZUMAB [Suspect]
     Active Substance: BEVACIZUMAB
     Dosage: 390 MG
     Route: 041
     Dates: start: 20220613, end: 20220613
  11. BEVACIZUMAB [Suspect]
     Active Substance: BEVACIZUMAB
     Dosage: 390 MG
     Route: 041
     Dates: start: 20220627, end: 20220627
  12. BEVACIZUMAB [Suspect]
     Active Substance: BEVACIZUMAB
     Dosage: 390 MG
     Route: 041
     Dates: start: 20220711, end: 20220711
  13. BEVACIZUMAB [Suspect]
     Active Substance: BEVACIZUMAB
     Dosage: 390 MG
     Route: 041
     Dates: start: 20220802, end: 20220802
  14. BEVACIZUMAB [Suspect]
     Active Substance: BEVACIZUMAB
     Dosage: 390 MG
     Route: 041
     Dates: start: 20220816, end: 20220816
  15. FLUOROURACIL [Suspect]
     Active Substance: FLUOROURACIL
     Indication: Colorectal cancer
     Dosage: 4660 MG
     Route: 042
     Dates: start: 20220207, end: 20220207
  16. FLUOROURACIL [Suspect]
     Active Substance: FLUOROURACIL
     Dosage: 780 MG
     Route: 042
     Dates: start: 20220207, end: 20220307
  17. FLUOROURACIL [Suspect]
     Active Substance: FLUOROURACIL
     Dosage: 4680 MG
     Route: 042
     Dates: start: 20220222, end: 20220222
  18. FLUOROURACIL [Suspect]
     Active Substance: FLUOROURACIL
     Dosage: 780 MG
     Route: 042
     Dates: start: 20220307, end: 20220307
  19. FLUOROURACIL [Suspect]
     Active Substance: FLUOROURACIL
     Dosage: 770 MG
     Route: 042
     Dates: start: 20220321, end: 20220321
  20. FLUOROURACIL [Suspect]
     Active Substance: FLUOROURACIL
     Dosage: 4630 MG
     Route: 042
     Dates: start: 20220321, end: 20220321
  21. FLUOROURACIL [Suspect]
     Active Substance: FLUOROURACIL
     Dosage: 770 MG
     Route: 042
     Dates: start: 20220404, end: 20220404
  22. FLUOROURACIL [Suspect]
     Active Substance: FLUOROURACIL
     Dosage: 4580 MG
     Route: 042
     Dates: start: 20220419, end: 20220601
  23. FLUOROURACIL [Suspect]
     Active Substance: FLUOROURACIL
     Dosage: 760 MG
     Route: 042
     Dates: start: 20220419, end: 20220627
  24. FLUOROURACIL [Suspect]
     Active Substance: FLUOROURACIL
     Dosage: 4560 MG
     Route: 042
     Dates: start: 20220613, end: 20220613
  25. FLUOROURACIL [Suspect]
     Active Substance: FLUOROURACIL
     Dosage: 4550 MG
     Route: 042
     Dates: start: 20220627, end: 20220627
  26. FLUOROURACIL [Suspect]
     Active Substance: FLUOROURACIL
     Dosage: 3610 MG
     Route: 042
     Dates: start: 20220711, end: 20220711
  27. FLUOROURACIL [Suspect]
     Active Substance: FLUOROURACIL
     Dosage: 3140 MG
     Route: 042
     Dates: start: 20220817, end: 20220817
  28. OXALIPLATIN [Suspect]
     Active Substance: OXALIPLATIN
     Indication: Colorectal cancer
     Dosage: 120 MG
     Route: 042
     Dates: start: 20220222, end: 20220222
  29. OXALIPLATIN [Suspect]
     Active Substance: OXALIPLATIN
     Dosage: 120 MG
     Route: 042
     Dates: start: 20220307, end: 20220307
  30. OXALIPLATIN [Suspect]
     Active Substance: OXALIPLATIN
     Dosage: 120 MG
     Route: 042
     Dates: start: 20220802, end: 20220802
  31. OXALIPLATIN [Suspect]
     Active Substance: OXALIPLATIN
     Dosage: 120 MG
     Route: 042
     Dates: start: 20220817, end: 20220817
  32. OXALIPLATIN [Suspect]
     Active Substance: OXALIPLATIN
     Dosage: 160 MG
     Route: 042
     Dates: start: 20220207, end: 20220207
  33. OXALIPLATIN [Suspect]
     Active Substance: OXALIPLATIN
     Dosage: 160 MG
     Route: 042
     Dates: start: 20220321, end: 20220321
  34. OXALIPLATIN [Suspect]
     Active Substance: OXALIPLATIN
     Dosage: 160 MG
     Route: 042
     Dates: start: 20220404, end: 20220404
  35. OXALIPLATIN [Suspect]
     Active Substance: OXALIPLATIN
     Dosage: 160 MG
     Route: 042
     Dates: start: 20220419, end: 20220419
  36. OXALIPLATIN [Suspect]
     Active Substance: OXALIPLATIN
     Dosage: 160 MG
     Route: 042
     Dates: start: 20220502, end: 20220502
  37. OXALIPLATIN [Suspect]
     Active Substance: OXALIPLATIN
     Dosage: 160 MG
     Route: 042
     Dates: start: 20220516, end: 20220516
  38. OXALIPLATIN [Suspect]
     Active Substance: OXALIPLATIN
     Dosage: 160 MG
     Route: 042
     Dates: start: 20220601, end: 20220601
  39. OXALIPLATIN [Suspect]
     Active Substance: OXALIPLATIN
     Dosage: 160 MG
     Route: 042
     Dates: start: 20220613, end: 20220613
  40. OXALIPLATIN [Suspect]
     Active Substance: OXALIPLATIN
     Dosage: 160 MG
     Route: 042
     Dates: start: 20220627, end: 20220627
  41. OXALIPLATIN [Suspect]
     Active Substance: OXALIPLATIN
     Dosage: 160 MG
     Route: 042
     Dates: start: 20220711, end: 20220711
  42. LEUCOVORIN CALCIUM [Suspect]
     Active Substance: LEUCOVORIN CALCIUM
     Indication: Colorectal cancer
     Dosage: 99 MG
     Route: 041
     Dates: start: 20220207, end: 20220207
  43. LEUCOVORIN CALCIUM [Suspect]
     Active Substance: LEUCOVORIN CALCIUM
     Dosage: 99 MG
     Route: 041
     Dates: start: 20220222, end: 20220222
  44. LEUCOVORIN CALCIUM [Suspect]
     Active Substance: LEUCOVORIN CALCIUM
     Dosage: 99 MG
     Route: 041
     Dates: start: 20220307, end: 20220307
  45. LEUCOVORIN CALCIUM [Suspect]
     Active Substance: LEUCOVORIN CALCIUM
     Dosage: 99 MG
     Route: 041
     Dates: start: 20220321, end: 20220321
  46. LEUCOVORIN CALCIUM [Suspect]
     Active Substance: LEUCOVORIN CALCIUM
     Dosage: 99 MG
     Route: 041
     Dates: start: 20220404, end: 20220404
  47. LEUCOVORIN CALCIUM [Suspect]
     Active Substance: LEUCOVORIN CALCIUM
     Dosage: 99 MG
     Route: 041
     Dates: start: 20220419, end: 20220419
  48. LEUCOVORIN CALCIUM [Suspect]
     Active Substance: LEUCOVORIN CALCIUM
     Dosage: 99 MG
     Route: 041
     Dates: start: 20220502, end: 20220502
  49. LEUCOVORIN CALCIUM [Suspect]
     Active Substance: LEUCOVORIN CALCIUM
     Dosage: 99 MG
     Route: 041
     Dates: start: 20220516, end: 20220516
  50. LEUCOVORIN CALCIUM [Suspect]
     Active Substance: LEUCOVORIN CALCIUM
     Dosage: 99 MG
     Route: 041
     Dates: start: 20220601, end: 20220601
  51. LEUCOVORIN CALCIUM [Suspect]
     Active Substance: LEUCOVORIN CALCIUM
     Dosage: 99 MG
     Route: 041
     Dates: start: 20220613, end: 20220613
  52. LEUCOVORIN CALCIUM [Suspect]
     Active Substance: LEUCOVORIN CALCIUM
     Dosage: 99 MG
     Route: 041
     Dates: start: 20220627, end: 20220627
  53. LEUCOVORIN CALCIUM [Suspect]
     Active Substance: LEUCOVORIN CALCIUM
     Dosage: 99 MG
     Route: 041
     Dates: start: 20220711, end: 20220711
  54. LEUCOVORIN CALCIUM [Suspect]
     Active Substance: LEUCOVORIN CALCIUM
     Dosage: 99 MG
     Route: 041
     Dates: start: 20220802, end: 20220802
  55. LEUCOVORIN CALCIUM [Suspect]
     Active Substance: LEUCOVORIN CALCIUM
     Dosage: 99 MG
     Route: 041
     Dates: start: 20220817, end: 20220817
  56. ETRUMADENANT [Suspect]
     Active Substance: ETRUMADENANT
     Indication: Colorectal cancer
     Dosage: 150 MG
     Route: 042
     Dates: start: 20220307, end: 20220403
  57. ETRUMADENANT [Suspect]
     Active Substance: ETRUMADENANT
     Dosage: 150 MG
     Route: 042
     Dates: start: 20220404, end: 20220404
  58. ETRUMADENANT [Suspect]
     Active Substance: ETRUMADENANT
     Dosage: 150 MG
     Route: 042
     Dates: start: 20220502, end: 20220502
  59. ETRUMADENANT [Suspect]
     Active Substance: ETRUMADENANT
     Dosage: 150 MG
     Route: 042
     Dates: start: 20220601, end: 20220601
  60. ETRUMADENANT [Suspect]
     Active Substance: ETRUMADENANT
     Dosage: 150 MG
     Route: 042
     Dates: start: 20220627, end: 20220627
  61. ETRUMADENANT [Suspect]
     Active Substance: ETRUMADENANT
     Dosage: 150 MG
     Route: 042
     Dates: start: 20220802, end: 20220802
  62. ZIMBERELIMAB [Suspect]
     Active Substance: ZIMBERELIMAB
     Indication: Colorectal cancer
     Dosage: 480 MG
     Route: 042
     Dates: start: 20220307, end: 20220307
  63. ZIMBERELIMAB [Suspect]
     Active Substance: ZIMBERELIMAB
     Dosage: 480 MG
     Route: 042
     Dates: start: 20220404, end: 20220404
  64. ZIMBERELIMAB [Suspect]
     Active Substance: ZIMBERELIMAB
     Dosage: 480 MG
     Route: 042
     Dates: start: 20220502, end: 20220502
  65. ZIMBERELIMAB [Suspect]
     Active Substance: ZIMBERELIMAB
     Dosage: 480 MG
     Route: 042
     Dates: start: 20220601, end: 20220601
  66. ZIMBERELIMAB [Suspect]
     Active Substance: ZIMBERELIMAB
     Dosage: 480 MG
     Route: 042
     Dates: start: 20220602, end: 20220602
  67. ZIMBERELIMAB [Suspect]
     Active Substance: ZIMBERELIMAB
     Dosage: 480 MG
     Route: 042
     Dates: start: 20220627, end: 20220627
  68. ZIMBERELIMAB [Suspect]
     Active Substance: ZIMBERELIMAB
     Dosage: 480 MG
     Route: 042
     Dates: start: 20220802, end: 20220802
  69. DESLORATADINE [Concomitant]
     Active Substance: DESLORATADINE
     Dosage: UNK
     Dates: start: 20220530
  70. POLYETHYLENE GLYCOL 3350 [Concomitant]
     Active Substance: POLYETHYLENE GLYCOL 3350
     Dosage: UNK
     Dates: start: 20220801
  71. METHYLPREDNISOLONE [Concomitant]
     Active Substance: METHYLPREDNISOLONE
     Dosage: UNK
     Dates: start: 20220502
  72. ACETAMINOPHEN [Concomitant]
     Active Substance: ACETAMINOPHEN
     Dosage: UNK
  73. SODIUM CHLORIDE [Concomitant]
     Active Substance: SODIUM CHLORIDE
     Dosage: UNK
     Dates: start: 20220801
  74. PREDNISOLONE [Concomitant]
     Active Substance: PREDNISOLONE
     Dosage: UNK
     Dates: start: 20220801
  75. SODIUM CARBONATE [Concomitant]
     Active Substance: SODIUM CARBONATE
     Dosage: UNK
     Dates: start: 20220801
  76. POTASSIUM CHLORIDE [Concomitant]
     Active Substance: POTASSIUM CHLORIDE
     Dosage: UNK
     Dates: start: 20220801

REACTIONS (3)
  - Neoplasm progression [Fatal]
  - Pyrexia [Recovered/Resolved]
  - Deep vein thrombosis [Recovering/Resolving]

NARRATIVE: CASE EVENT DATE: 20220427
